FAERS Safety Report 15827939 (Version 1)
Quarter: 2019Q1

REPORT INFORMATION
  Report Type: Spontaneous
  Country: US (occurrence: US)
  Receive Date: 20190115
  Receipt Date: 20190115
  Transmission Date: 20190417
  Serious: Yes (Other)
  Sender: FDA-Public Use
  Company Number: US-REGENERON PHARMACEUTICALS, INC.-2018-15670

PATIENT

DRUGS (3)
  1. EYLEA [Suspect]
     Active Substance: AFLIBERCEPT
     Indication: PRODUCT USED FOR UNKNOWN INDICATION
     Dosage: UNK, BILATERAL
     Route: 031
  2. EYLEA [Suspect]
     Active Substance: AFLIBERCEPT
     Dosage: UNK, LAST DOSE, RIGHT EYE
     Route: 031
     Dates: start: 20180212, end: 20180212
  3. EYLEA [Suspect]
     Active Substance: AFLIBERCEPT
     Dosage: UNK, LAST DOSE, LEFT EYE
     Route: 031
     Dates: start: 20180219, end: 20180219

REACTIONS (2)
  - Non-infectious endophthalmitis [Unknown]
  - Eye pain [Unknown]

NARRATIVE: CASE EVENT DATE: 20180220
